FAERS Safety Report 11860604 (Version 1)
Quarter: 2015Q4

REPORT INFORMATION
  Report Type: Other
  Country: GB (occurrence: GB)
  Receive Date: 20151222
  Receipt Date: 20151222
  Transmission Date: 20160305
  Serious: Yes (Death, Other)
  Sender: FDA-Public Use
  Company Number: GB-MYLANLABS-2015M1044682

PATIENT

DRUGS (2)
  1. LANSOPRAZOLE. [Suspect]
     Active Substance: LANSOPRAZOLE
     Dosage: 1 DF, BID
     Route: 048
  2. BCG [Concomitant]
     Active Substance: BCG VACCINE
     Dosage: UNK

REACTIONS (6)
  - Acute hepatic failure [Fatal]
  - Abdominal pain upper [Unknown]
  - Jaundice [Unknown]
  - Lip discolouration [Unknown]
  - Histiocytosis haematophagic [Fatal]
  - Lip swelling [Unknown]
